FAERS Safety Report 18721843 (Version 4)
Quarter: 2021Q2

REPORT INFORMATION
  Report Type: Spontaneous
  Country: US (occurrence: US)
  Receive Date: 20210111
  Receipt Date: 20210401
  Transmission Date: 20210717
  Serious: Yes (Death, Hospitalization)
  Sender: FDA-Public Use
  Company Number: US-ABBVIE-21K-163-3722508-00

PATIENT
  Age: 83 Year
  Sex: Female
  Weight: 44.49 kg

DRUGS (2)
  1. IMBRUVICA [Suspect]
     Active Substance: IBRUTINIB
     Indication: PRODUCT USED FOR UNKNOWN INDICATION
     Route: 048
     Dates: start: 2017
  2. IMBRUVICA [Suspect]
     Active Substance: IBRUTINIB
     Indication: NON-HODGKIN^S LYMPHOMA
     Dosage: 3 TABLETS AT 9 AM
     Route: 048

REACTIONS (10)
  - Hip fracture [Fatal]
  - Weight decreased [Not Recovered/Not Resolved]
  - Cough [Unknown]
  - Fall [Fatal]
  - Dehydration [Unknown]
  - Ulcer [Unknown]
  - Hypertonic bladder [Not Recovered/Not Resolved]
  - Gastrooesophageal reflux disease [Not Recovered/Not Resolved]
  - Hypophagia [Recovered/Resolved]
  - Non-Hodgkin^s lymphoma [Fatal]

NARRATIVE: CASE EVENT DATE: 202009
